FAERS Safety Report 17400715 (Version 1)
Quarter: 2020Q1

REPORT INFORMATION
  Report Type: Spontaneous
  Country: US (occurrence: US)
  Receive Date: 20200126
  Receipt Date: 20200126
  Transmission Date: 20200409
  Serious: No
  Sender: FDA-Public Use
  Company Number: None

PATIENT
  Age: 57 Year
  Sex: Male
  Weight: 97 kg

DRUGS (1)
  1. CLINDAMYCIN (CLINDAMYCIN HCL 150MG CAP) [Suspect]
     Active Substance: CLINDAMYCIN
     Indication: PRODUCT USED FOR UNKNOWN INDICATION
     Route: 048
     Dates: start: 20140101, end: 20140101

REACTIONS (3)
  - Condition aggravated [None]
  - Drug hypersensitivity [None]
  - Eczema [None]

NARRATIVE: CASE EVENT DATE: 20140101
